FAERS Safety Report 6489624-8 (Version None)
Quarter: 2009Q4

REPORT INFORMATION
  Report Type: 
  Country: None (occurrence: None)
  Receive Date: 20091210
  Receipt Date: 20091202
  Transmission Date: 20100525
  Serious: Yes (Life-Threatening, Hospitalization, Other)
  Sender: FDA-Public Use
  Company Number: DE-NOVOPROD-289598

PATIENT

DRUGS (3)
  1. NORDITROPIN [Suspect]
     Indication: GROWTH HORMONE DEFICIENCY
     Dosage: .4 MG, QD
     Route: 058
     Dates: start: 20070223, end: 20090719
  2. HYDROCORTISON                      /00028601/ [Concomitant]
     Dosage: UNK
     Route: 048
     Dates: start: 20081006
  3. MINIRIN [Concomitant]
     Dosage: UNK
     Route: 045
     Dates: start: 20090512

REACTIONS (1)
  - LYMPHOCYTIC LEUKAEMIA [None]
